FAERS Safety Report 16727350 (Version 2)
Quarter: 2019Q3

REPORT INFORMATION
  Report Type: Report from Study
  Country: US (occurrence: US)
  Receive Date: 20190822
  Receipt Date: 20190913
  Transmission Date: 20191005
  Serious: Yes (Other)
  Sender: FDA-Public Use
  Company Number: US-SA-2019SA229183

PATIENT
  Age: 25 Year
  Sex: Male

DRUGS (1)
  1. TERIFLUNOMIDE. [Suspect]
     Active Substance: TERIFLUNOMIDE
     Indication: MULTIPLE SCLEROSIS
     Dosage: 14 MG, QD
     Route: 048
     Dates: start: 201906

REACTIONS (9)
  - Joint stiffness [Unknown]
  - Gait inability [Unknown]
  - Melaena [Not Recovered/Not Resolved]
  - Joint stiffness [Unknown]
  - Multiple sclerosis relapse [Unknown]
  - Loss of control of legs [Recovering/Resolving]
  - Hypokinesia [Unknown]
  - Impaired driving ability [Unknown]
  - Product dose omission [Unknown]

NARRATIVE: CASE EVENT DATE: 201906
